FAERS Safety Report 5572912-7 (Version None)
Quarter: 2007Q4

REPORT INFORMATION
  Report Type: 
  Country: None (occurrence: None)
  Receive Date: 20071219
  Receipt Date: 20071219
  Transmission Date: 20080405
  Serious: Yes (Hospitalization, Other)
  Sender: FDA-Public Use
  Company Number: None

PATIENT
  Sex: Female
  Weight: 56.6996 kg

DRUGS (1)
  1. PHENYTEK [Suspect]
     Indication: CONVULSION
     Dosage: ONE-1- CAPSULE AT BEDTIME  PO
     Route: 048
     Dates: start: 20070809, end: 20070919

REACTIONS (5)
  - CONVULSION [None]
  - DRUG LEVEL DECREASED [None]
  - IMPAIRED DRIVING ABILITY [None]
  - PHARMACEUTICAL PRODUCT COMPLAINT [None]
  - POOR QUALITY DRUG ADMINISTERED [None]
